FAERS Safety Report 6907242-1 (Version None)
Quarter: 2010Q3

REPORT INFORMATION
  Report Type: 
  Country: None (occurrence: None)
  Receive Date: 20100802
  Receipt Date: 20100720
  Transmission Date: 20110219
  Serious: Yes (Other)
  Sender: FDA-Public Use
  Company Number: AUR-APL-2010-01823

PATIENT
  Age: 79 Year
  Sex: Female

DRUGS (9)
  1. SIMVASTATIN [Suspect]
     Indication: CORONARY ARTERY DISEASE
     Dosage: 20MG - DAILY - ORAL
     Route: 048
     Dates: start: 20090901
  2. METOPROLOL SUCCINATE [Suspect]
     Indication: CORONARY ARTERY DISEASE
     Dosage: 47.5MG - BID - ORAL
     Route: 048
     Dates: start: 20090301
  3. OMEPRAZOLE [Suspect]
     Indication: EXTRANODAL MARGINAL ZONE B-CELL LYMPHOMA (MALT TYPE)
     Dosage: 40MG-DAILY-ORAL
     Route: 048
     Dates: start: 20050101
  4. METFORMIN HCL [Concomitant]
  5. GLIMEPIRIDE [Concomitant]
  6. ACETYLSALICYLIC ACID 100 [Concomitant]
  7. HYDROCHLOROTHIAZIDE 25 [Concomitant]
  8. CORFEO 20 (LERCANIDIPINE, 0.5DF DAILY) [Concomitant]
  9. RAMIPRIL 10 [Concomitant]

REACTIONS (1)
  - PATHOLOGICAL FRACTURE [None]
